FAERS Safety Report 13073414 (Version 1)
Quarter: 2016Q4

REPORT INFORMATION
  Report Type: Spontaneous
  Country: US (occurrence: US)
  Receive Date: 20161229
  Receipt Date: 20161229
  Transmission Date: 20170207
  Serious: No
  Sender: FDA-Public Use
  Company Number: US-SA-2016SA135075

PATIENT
  Age: 39 Year
  Sex: Female

DRUGS (2)
  1. ADDERALL [Concomitant]
     Active Substance: AMPHETAMINE ASPARTATE\AMPHETAMINE SULFATE\DEXTROAMPHETAMINE SACCHARATE\DEXTROAMPHETAMINE SULFATE
  2. THYROGEN [Suspect]
     Active Substance: THYROTROPIN ALFA
     Indication: THERAPEUTIC PROCEDURE
     Route: 065
     Dates: start: 20160720

REACTIONS (1)
  - Fatigue [Recovered/Resolved]

NARRATIVE: CASE EVENT DATE: 20160720
